FAERS Safety Report 4999265-7 (Version None)
Quarter: 2006Q2

REPORT INFORMATION
  Report Type: 
  Country: None (occurrence: None)
  Receive Date: 20060510
  Receipt Date: 20060510
  Transmission Date: 20061013
  Serious: Yes (Life-Threatening)
  Sender: FDA-Public Use
  Company Number: None

PATIENT
  Age: 58 Year
  Sex: Male
  Weight: 61 kg

DRUGS (17)
  1. COUMADIN [Suspect]
     Indication: DEEP VEIN THROMBOSIS
     Dosage: 5 MG DAILY PO
     Route: 048
     Dates: start: 20060420, end: 20060506
  2. CORDARONE [Suspect]
     Indication: ATRIAL FIBRILLATION
  3. CORDARONE [Suspect]
     Indication: ATRIAL FLUTTER
  4. TYLENOL (CAPLET) [Concomitant]
  5. PROCARDIA [Concomitant]
  6. TESALON [Concomitant]
  7. DURAGESIC-100 [Concomitant]
  8. ARANESP [Concomitant]
  9. HECTOROL [Concomitant]
  10. CORDARONE [Concomitant]
  11. COUMADIN [Concomitant]
  12. MEGACE [Concomitant]
  13. COREG [Concomitant]
  14. PRILOSEC [Concomitant]
  15. ASPIRIN [Concomitant]
  16. TOPROL-XL [Concomitant]
  17. MINOXIDIL [Concomitant]

REACTIONS (3)
  - HAEMORRHAGE [None]
  - INTRAVENTRICULAR HAEMORRHAGE [None]
  - SUBARACHNOID HAEMORRHAGE [None]
